FAERS Safety Report 10047625 (Version 1)
Quarter: 2014Q1

REPORT INFORMATION
  Report Type: Spontaneous
  Country: US (occurrence: US)
  Receive Date: 20140331
  Receipt Date: 20140331
  Transmission Date: 20141002
  Serious: Yes (Other)
  Sender: FDA-Public Use
  Company Number: US-PFIZER INC-2014090317

PATIENT
  Sex: Female

DRUGS (1)
  1. PRISTIQ [Suspect]
     Dosage: UNK

REACTIONS (7)
  - Interstitial lung disease [Unknown]
  - Hyperthyroidism [Unknown]
  - Autoimmune thyroiditis [Unknown]
  - Feeling abnormal [Unknown]
  - Hypertension [Unknown]
  - Heart rate increased [Unknown]
  - Anxiety disorder [Unknown]
